FAERS Safety Report 9619234 (Version 1)
Quarter: 2013Q4

REPORT INFORMATION
  Report Type: Report from Study
  Country: IT (occurrence: IT)
  Receive Date: 20131014
  Receipt Date: 20131014
  Transmission Date: 20140711
  Serious: Yes (Life-Threatening, Hospitalization, Other)
  Sender: FDA-Public Use
  Company Number: IT-PFIZER INC-2013290023

PATIENT
  Age: 55 Year
  Sex: Male
  Weight: 105 kg

DRUGS (1)
  1. AXITINIB [Suspect]
     Indication: RENAL CELL CARCINOMA
     Dosage: 6 MG, DAILY
     Route: 048
     Dates: start: 20130819

REACTIONS (1)
  - Intestinal ischaemia [Not Recovered/Not Resolved]
